FAERS Safety Report 11748290 (Version 2)
Quarter: 2015Q4

REPORT INFORMATION
  Report Type: Spontaneous
  Country: BR (occurrence: BR)
  Receive Date: 20151117
  Receipt Date: 20151203
  Transmission Date: 20160304
  Serious: No
  Sender: FDA-Public Use
  Company Number: BR-PFIZER INC-2015385845

PATIENT
  Age: 70 Year
  Sex: Male
  Weight: 102 kg

DRUGS (8)
  1. ISOSORBIDE DINITRATE. [Concomitant]
     Active Substance: ISOSORBIDE DINITRATE
  2. CARVEDILOL. [Concomitant]
     Active Substance: CARVEDILOL
  3. ASPIRIN. [Concomitant]
     Active Substance: ASPIRIN
  4. PREGABALINA TEUTO [Suspect]
     Active Substance: PREGABALIN
     Indication: PROCEDURAL PAIN
  5. PREGABALINA TEUTO [Suspect]
     Active Substance: PREGABALIN
     Indication: MUSCULOSKELETAL PAIN
     Dosage: 150 MG (2 CAPSULES), 2X/DAY (EVERY 12 HOURS), AFTER MEAL
     Dates: start: 20151022, end: 20151024
  6. SIMVASTATIN. [Concomitant]
     Active Substance: SIMVASTATIN
  7. PROCORALAN [Concomitant]
     Active Substance: IVABRADINE
  8. LOSARTAN. [Concomitant]
     Active Substance: LOSARTAN
     Dosage: STRENGTH 50 MG

REACTIONS (6)
  - Dizziness [Recovered/Resolved]
  - Vertigo [Recovered/Resolved]
  - Vomiting [Recovered/Resolved]
  - Malaise [Recovered/Resolved]
  - Product use issue [Unknown]
  - Aphasia [Recovered/Resolved]

NARRATIVE: CASE EVENT DATE: 20151024
